FAERS Safety Report 9425744 (Version 3)
Quarter: 2013Q3

REPORT INFORMATION
  Report Type: Spontaneous
  Country: DE (occurrence: DE)
  Receive Date: 20130729
  Receipt Date: 20130916
  Transmission Date: 20140515
  Serious: Yes (Hospitalization)
  Sender: FDA-Public Use
  Company Number: DE-PFIZER INC-2013215295

PATIENT
  Age: 14 Month
  Sex: Female
  Weight: 6.6 kg

DRUGS (2)
  1. SILDENAFIL PFIZER [Suspect]
     Indication: PULMONARY HYPERTENSION
     Dosage: 3 MG, 4X/DAY
     Route: 048
     Dates: start: 201207
  2. SILDENAFIL PFIZER [Suspect]
     Indication: BRONCHOPULMONARY DYSPLASIA
     Dosage: 6 MG, 3X/DAY
     Route: 048

REACTIONS (1)
  - Hyperhidrosis [Not Recovered/Not Resolved]
